FAERS Safety Report 14315302 (Version 4)
Quarter: 2018Q2

REPORT INFORMATION
  Report Type: Report from Study
  Country: CA (occurrence: CA)
  Receive Date: 20171221
  Receipt Date: 20180423
  Transmission Date: 20180711
  Serious: Yes (Other)
  Sender: FDA-Public Use
  Company Number: CA-TAKEDA-2017TUS004747

PATIENT
  Age: 59 Year
  Sex: Male

DRUGS (17)
  1. SALAZOPYRIN [Concomitant]
     Active Substance: SULFASALAZINE
     Dosage: 500 MG, BID
     Dates: start: 20150824
  2. AMLODIPINE [Concomitant]
     Active Substance: AMLODIPINE BESYLATE
     Indication: CARDIOVASCULAR DISORDER
     Dosage: 5 MG, QD
     Dates: start: 20150825
  3. FUCIDIN H                          /01518501/ [Concomitant]
     Dosage: 2% + 1%
     Route: 061
     Dates: start: 20151128
  4. APO FOLIC [Concomitant]
     Active Substance: FOLIC ACID
     Dosage: UNK, QD
     Route: 048
     Dates: start: 20151123
  5. SALOFALK                           /00000301/ [Concomitant]
     Active Substance: MESALAMINE
     Dosage: 4 G, UNK
     Route: 054
     Dates: start: 20150722
  6. NEVANAC [Concomitant]
     Active Substance: NEPAFENAC
     Indication: EYE DISORDER
     Dosage: 0.1 %, TID
     Route: 047
     Dates: start: 20150713
  7. PEGLYTE [Concomitant]
     Active Substance: POLYETHYLENE GLYCOL 3350\POTASSIUM CHLORIDE\SODIUM BICARBONATE\SODIUM CHLORIDE\SODIUM SULFATE
     Dosage: UNK
  8. CO PANTOPRAZOLE [Concomitant]
     Indication: ULCER
     Dosage: 40 MG, BID
     Dates: start: 20150914
  9. VEDOLIZUMAB [Suspect]
     Active Substance: VEDOLIZUMAB
     Indication: COLITIS ULCERATIVE
     Dosage: 300 MG, UNK
     Route: 042
     Dates: start: 20170118
  10. FUCIDIN H                          /01518501/ [Concomitant]
     Dosage: UNK
  11. APO BISOPROLOL [Concomitant]
     Active Substance: BISOPROLOL FUMARATE
     Indication: CARDIOVASCULAR DISORDER
     Dosage: 5 MG, UNK
     Dates: start: 20151123
  12. APO ATORVASTATIN [Concomitant]
     Active Substance: ATORVASTATIN CALCIUM
     Indication: BLOOD CHOLESTEROL
     Dosage: 10 MG, QD
     Dates: start: 20151123
  13. AZITHROMYCIN ANHYDROUS. [Concomitant]
     Active Substance: AZITHROMYCIN ANHYDROUS
     Dosage: 250 MG, UNK
     Dates: start: 20150919
  14. METFORMIN [Concomitant]
     Active Substance: METFORMIN HYDROCHLORIDE
     Indication: DIABETES MELLITUS
     Dosage: 500 MG, BID
     Dates: start: 20150914
  15. JANUVIA [Concomitant]
     Active Substance: SITAGLIPTIN PHOSPHATE
     Indication: DIABETES MELLITUS
     Dosage: UNK, QD
     Route: 048
     Dates: start: 20151123
  16. APO QUINAPRIL [Concomitant]
     Dosage: 40 MG, QD
     Dates: start: 20151123
  17. APO GLICLAZIDE [Concomitant]
     Indication: DIABETES MELLITUS
     Dosage: 30 MG, BID
     Dates: start: 20150825

REACTIONS (6)
  - Aortic valve stenosis [Recovered/Resolved]
  - Pyrexia [Not Recovered/Not Resolved]
  - Pulmonary oedema [Recovered/Resolved]
  - Pneumonia [Not Recovered/Not Resolved]
  - Blood pressure increased [Unknown]
  - Cardiac pacemaker insertion [Recovered/Resolved]

NARRATIVE: CASE EVENT DATE: 2017
